FAERS Safety Report 5837251-5 (Version None)
Quarter: 2008Q3

REPORT INFORMATION
  Report Type: 
  Country: None (occurrence: None)
  Receive Date: 20080807
  Receipt Date: 20080730
  Transmission Date: 20090109
  Serious: Yes (Hospitalization, Other)
  Sender: FDA-Public Use
  Company Number: ES-WYE-H05148208

PATIENT
  Age: 37 Year
  Sex: Female

DRUGS (9)
  1. VENLAFAXINE HCL [Suspect]
     Indication: DEPRESSION
  2. LAMOTRIGINE [Interacting]
     Indication: EPILEPSY
  3. MIRTAZAPINE [Concomitant]
     Indication: DEPRESSION
  4. PHENOBARBITAL TAB [Concomitant]
     Indication: EPILEPSY
  5. LEVETIRACETAM [Concomitant]
     Indication: EPILEPSY
  6. ALPRAZOLAM [Concomitant]
     Indication: ANXIETY
  7. CARBAMAZEPINE [Interacting]
     Indication: EPILEPSY
  8. CARBAMAZEPINE [Interacting]
  9. PRAVASTATIN [Concomitant]
     Indication: DYSLIPIDAEMIA
     Dosage: 10 MG, UNSPECIFIED FREQUENCY
     Route: 048

REACTIONS (6)
  - DRUG INTERACTION [None]
  - HEAD INJURY [None]
  - HYPERTONIA [None]
  - HYPONATRAEMIA [None]
  - INAPPROPRIATE ANTIDIURETIC HORMONE SECRETION [None]
  - SYNCOPE [None]
